FAERS Safety Report 7518215-2 (Version None)
Quarter: 2011Q2

REPORT INFORMATION
  Report Type: 
  Country: None (occurrence: None)
  Receive Date: 20110512
  Receipt Date: 20110117
  Transmission Date: 20111010
  Serious: No
  Sender: FDA-Public Use
  Company Number: 1000018198

PATIENT
  Age: 33 Year
  Sex: Female

DRUGS (14)
  1. AMBIEN [Concomitant]
  2. LIDOCAINE (LIDOCAINE PATCH) (LIDOCAINE PATCH) [Concomitant]
  3. MULTIVITAMIN (MULTIVITAMIN) (MULTIVITAMIN) [Concomitant]
  4. VITAMIN D (VITAMIN D) (VITAMIN D) [Concomitant]
  5. COLACE (DOCUSATE SODIUM) (DOCUSATE SODIUM) [Concomitant]
  6. PERCOCET (OXYCODONE, ACETAMINOPHEN) (OXYCODONE, ACETAMINOPHEN) [Concomitant]
  7. SAVELLA [Suspect]
     Indication: FIBROMYALGIA
     Dosage: SEE IMAGE
     Route: 048
     Dates: start: 20101203, end: 20101205
  8. SAVELLA [Suspect]
     Indication: FIBROMYALGIA
     Dosage: SEE IMAGE
     Route: 048
     Dates: start: 20101212, end: 20101223
  9. SAVELLA [Suspect]
     Indication: FIBROMYALGIA
     Dosage: SEE IMAGE
     Route: 048
     Dates: start: 20101206, end: 20101211
  10. SAVELLA [Suspect]
     Indication: FIBROMYALGIA
     Dosage: SEE IMAGE
     Route: 048
     Dates: start: 20101224, end: 20110113
  11. SAVELLA [Suspect]
     Indication: FIBROMYALGIA
     Dosage: 75 MG QAM, 50 MG QPM, ORAL; 75 MG QAM, 25 MG QPM, ORAL; 100 MG (50 MG, 2 IN 1 D), ORAL
     Route: 048
     Dates: start: 20110114, end: 20110116
  12. SAVELLA [Suspect]
     Indication: FIBROMYALGIA
     Dosage: 75 MG QAM, 50 MG QPM, ORAL; 75 MG QAM, 25 MG QPM, ORAL; 100 MG (50 MG, 2 IN 1 D), ORAL
     Route: 048
     Dates: start: 20110117, end: 20110117
  13. SAVELLA [Suspect]
     Indication: FIBROMYALGIA
     Dosage: 75 MG QAM, 50 MG QPM, ORAL; 75 MG QAM, 25 MG QPM, ORAL; 100 MG (50 MG, 2 IN 1 D), ORAL
     Route: 048
     Dates: start: 20110118
  14. VALIUM [Concomitant]

REACTIONS (4)
  - SWEAT DISCOLOURATION [None]
  - HOT FLUSH [None]
  - CHILLS [None]
  - HEADACHE [None]
